FAERS Safety Report 8868970 (Version 1)
Quarter: 2012Q4

REPORT INFORMATION
  Report Type: Spontaneous
  Country: IL (occurrence: None)
  Receive Date: 20121022
  Receipt Date: 20121022
  Transmission Date: 20130627
  Serious: Yes (Hospitalization)
  Sender: FDA-Public Use
  Company Number: 140373

PATIENT
  Age: 28 Year
  Sex: Female

DRUGS (4)
  1. KETAMINE HYDROCHLORIDE [Suspect]
     Indication: RESTLESSNESS
     Route: 042
  2. KETAMINE HYDROCHLORIDE [Suspect]
     Indication: ABDOMINAL PAIN
     Route: 042
  3. MIDAZOLAM HCL INJ. 1MG/1ML (10ML) [Suspect]
     Indication: RESTLESSNESS
  4. MIDAZOLAM HCL INJ. 1MG/1ML (10ML) [Suspect]
     Indication: ABDOMINAL PAIN

REACTIONS (2)
  - Myoclonus [None]
  - Exposure during pregnancy [None]
